FAERS Safety Report 7009663-8 (Version None)
Quarter: 2010Q3

REPORT INFORMATION
  Report Type: 
  Country: None (occurrence: None)
  Receive Date: 20100923
  Receipt Date: 20100914
  Transmission Date: 20110219
  Serious: Yes (Other)
  Sender: FDA-Public Use
  Company Number: IT-PFIZER INC-2010113789

PATIENT
  Age: 75 Year
  Sex: Male

DRUGS (1)
  1. SUNITINIB MALATE [Suspect]

REACTIONS (1)
  - CARDIOVASCULAR INSUFFICIENCY [None]
